FAERS Safety Report 25522715 (Version 2)
Quarter: 2025Q3

REPORT INFORMATION
  Report Type: Spontaneous
  Country: JP (occurrence: JP)
  Receive Date: 20250707
  Receipt Date: 20250919
  Transmission Date: 20251020
  Serious: Yes (Hospitalization)
  Sender: MERCK SHARP & DOHME LLC
  Company Number: JP-009507513-2301575

PATIENT
  Age: 76 Year
  Sex: Male
  Weight: 43 kg

DRUGS (20)
  1. KEYTRUDA [Suspect]
     Active Substance: PEMBROLIZUMAB
     Indication: Glottis carcinoma
     Route: 041
     Dates: start: 20241217
  2. KEYTRUDA [Suspect]
     Active Substance: PEMBROLIZUMAB
     Indication: Glottis carcinoma
     Route: 041
     Dates: start: 20250117, end: 20250117
  3. KEYTRUDA [Suspect]
     Active Substance: PEMBROLIZUMAB
     Indication: Glottis carcinoma
     Route: 041
     Dates: start: 20250206, end: 20250206
  4. Granisetron Intravenous Solution 1mg [Concomitant]
     Route: 041
     Dates: start: 20241217
  5. FLUOROURACIL [Suspect]
     Active Substance: FLUOROURACIL
     Indication: Glottis carcinoma
     Route: 041
     Dates: start: 20241217
  6. FLUOROURACIL [Suspect]
     Active Substance: FLUOROURACIL
     Indication: Glottis carcinoma
     Route: 041
     Dates: start: 20250117, end: 20250117
  7. FLUOROURACIL [Suspect]
     Active Substance: FLUOROURACIL
     Indication: Glottis carcinoma
     Route: 041
     Dates: start: 20250206, end: 20250206
  8. FLUOROURACIL [Suspect]
     Active Substance: FLUOROURACIL
     Indication: Glottis carcinoma
     Route: 041
     Dates: start: 20250318, end: 20250318
  9. Carboplatin intravenous infusion 50mg/150mg [Concomitant]
     Route: 041
     Dates: start: 20241217
  10. Alokaris IV infusion 235mg [Concomitant]
     Route: 041
     Dates: start: 20241217
  11. Oxynorm Powder 5mg/10mg [Concomitant]
     Route: 048
  12. FENTOS Tapes 2mg [Concomitant]
     Route: 050
  13. Dexamethasone injection 3.3mg [Concomitant]
     Route: 041
     Dates: start: 20241217
  14. Cefepime for intravenous use 1g [Concomitant]
     Route: 041
     Dates: start: 20250324, end: 20250331
  15. ZICTHORU Tapes 75mg [Concomitant]
     Route: 050
  16. Thyradgin S Tablets 50  g/25  g [Concomitant]
     Route: 048
  17. VONOPRAZAN FUMARATE [Concomitant]
     Active Substance: VONOPRAZAN FUMARATE
     Route: 048
  18. TENELIA OD TABLETS 20mg [Concomitant]
     Route: 048
  19. CALONAL [Concomitant]
     Active Substance: ACETAMINOPHEN
     Route: 048
  20. OXINORM [Concomitant]
     Route: 048

REACTIONS (1)
  - Drug eruption [Recovered/Resolved]

NARRATIVE: CASE EVENT DATE: 20250215
